FAERS Safety Report 15154943 (Version 1)
Quarter: 2018Q3

REPORT INFORMATION
  Report Type: Spontaneous
  Country: SE (occurrence: SE)
  Receive Date: 20180717
  Receipt Date: 20180717
  Transmission Date: 20181010
  Serious: Yes (Other)
  Sender: FDA-Public Use
  Company Number: SE-TEVA-2018-SE-925255

PATIENT
  Age: 83 Year
  Sex: Male

DRUGS (2)
  1. SIMVASTATIN BLUEFISH 40 MG FILMDRAGERAD TABLETT [Concomitant]
  2. ALENDRONAT [Suspect]
     Active Substance: ALENDRONATE SODIUM
     Route: 048
     Dates: start: 20160713, end: 20180302

REACTIONS (1)
  - Dermatitis [Recovered/Resolved]

NARRATIVE: CASE EVENT DATE: 20161010
